FAERS Safety Report 19703884 (Version 1)
Quarter: 2021Q3

REPORT INFORMATION
  Report Type: Spontaneous
  Country: FR (occurrence: FR)
  Receive Date: 20210816
  Receipt Date: 20210816
  Transmission Date: 20211014
  Serious: Yes (Hospitalization, Other)
  Sender: FDA-Public Use
  Company Number: FR-GLAXOSMITHKLINE-FRCH2021054470

PATIENT
  Age: 61 Year
  Sex: Male

DRUGS (4)
  1. IBUPROFENE [Suspect]
     Active Substance: IBUPROFEN
     Indication: HEADACHE
     Dosage: UNK
     Route: 048
     Dates: start: 20210522, end: 20210528
  2. PROFENID [Suspect]
     Active Substance: KETOPROFEN
     Indication: HEADACHE
     Dosage: 1 DF, QD
     Route: 048
     Dates: start: 20210525, end: 20210528
  3. RELPAX [Suspect]
     Active Substance: ELETRIPTAN HYDROBROMIDE
     Indication: HEADACHE
     Dosage: 1 DF
     Route: 048
     Dates: start: 20210528, end: 20210528
  4. COMIRNATY [Suspect]
     Active Substance: TOZINAMERAN
     Indication: COVID-19 IMMUNISATION
     Dosage: 1 DF, QD
     Route: 030
     Dates: start: 20210521, end: 20210521

REACTIONS (1)
  - Subarachnoid haemorrhage [Recovering/Resolving]

NARRATIVE: CASE EVENT DATE: 20210528
